FAERS Safety Report 24905692 (Version 1)
Quarter: 2025Q1

REPORT INFORMATION
  Report Type: Report from Study
  Country: US (occurrence: US)
  Receive Date: 20250130
  Receipt Date: 20250130
  Transmission Date: 20250408
  Serious: No
  Sender: HRA PHARMA
  Company Number: US-ORG100014127-2024000229

PATIENT
  Age: 17 Year
  Sex: Female

DRUGS (9)
  1. METOPIRONE [Suspect]
     Active Substance: METYRAPONE
     Indication: Ectopic ACTH syndrome
     Dosage: TAKE 4 CAPSULES EVERY MORNING, . 4 CAPSULES IN THE AFTERNOON AND 4 CAPSULES IN THE EVENING
     Dates: start: 20240504
  2. Banophen Capsule 50mg [Concomitant]
     Indication: Product used for unknown indication
  3. FAMOTIDINE [Concomitant]
     Active Substance: FAMOTIDINE
     Indication: Product used for unknown indication
  4. lactulose solution 10gm/15 [Concomitant]
     Indication: Product used for unknown indication
  5. lansoprazole capsule 30mg delayed-release [Concomitant]
     Indication: Product used for unknown indication
  6. morphine sulfate  tablet 15mg [Concomitant]
     Indication: Product used for unknown indication
  7. Promethazine tablet 12.5mg [Concomitant]
     Indication: Product used for unknown indication
  8. scopolamine dis 1mg/3day [Concomitant]
     Indication: Product used for unknown indication
  9. sucralfate suspension 1gm/10ml [Concomitant]
     Indication: Product used for unknown indication

REACTIONS (1)
  - Off label use [Unknown]
